FAERS Safety Report 7622523 (Version 2)
Quarter: 2013Q4

REPORT INFORMATION
  Report Type: Spontaneous
  Country: US (occurrence: US)
  Receive Date: 20101008
  Receipt Date: 20131113
  Transmission Date: 20140711
  Serious: Yes (Other)
  Sender: FDA-Public Use
  Company Number: US-US-EMD SERONO, INC.-7020022

PATIENT
  Sex: Female

DRUGS (3)
  1. REBIF [Suspect]
     Indication: MULTIPLE SCLEROSIS
     Route: 058
     Dates: start: 20100401
  2. POTASSIUM [Concomitant]
     Indication: CARDIAC DISORDER
     Route: 048
     Dates: end: 201009
  3. POTASSIUM [Concomitant]
     Route: 048
     Dates: start: 201009

REACTIONS (7)
  - Ejection fraction decreased [Unknown]
  - Blood glucose increased [Recovered/Resolved]
  - Laboratory test abnormal [Unknown]
  - Injection site erythema [Unknown]
  - Injection site pain [Unknown]
  - Fatigue [Unknown]
  - Pain [Unknown]
